FAERS Safety Report 7706290-1 (Version None)
Quarter: 2011Q3

REPORT INFORMATION
  Report Type: 
  Country: None (occurrence: None)
  Receive Date: 20110824
  Receipt Date: 20110818
  Transmission Date: 20111222
  Serious: Yes (Hospitalization, Other)
  Sender: FDA-Public Use
  Company Number: US-ROCHE-797615

PATIENT
  Sex: Female

DRUGS (1)
  1. BONIVA [Suspect]
     Indication: OSTEOPOROSIS
     Dosage: FIRST INJECTION ON 25 MAY 2010, SECOND INJECTION ON 26 AUG 2010,
     Route: 065
     Dates: start: 20100525, end: 20100826

REACTIONS (9)
  - ABDOMINAL PAIN [None]
  - PAIN IN JAW [None]
  - VOMITING [None]
  - TINNITUS [None]
  - TOOTHACHE [None]
  - DIZZINESS [None]
  - DEAFNESS UNILATERAL [None]
  - HYPERTENSION [None]
  - NAUSEA [None]
